FAERS Safety Report 24830372 (Version 1)
Quarter: 2025Q1

REPORT INFORMATION
  Report Type: Spontaneous
  Country: US (occurrence: None)
  Receive Date: 20250109
  Receipt Date: 20250109
  Transmission Date: 20250408
  Serious: No
  Sender: FDA-CTU
  Company Number: None

PATIENT
  Age: 8 Year
  Sex: Female
  Weight: 30.15 kg

DRUGS (2)
  1. MONTELUKAST [Suspect]
     Active Substance: MONTELUKAST
     Indication: Multiple allergies
     Dates: start: 20180814, end: 20191218
  2. Daily inhaler [Concomitant]

REACTIONS (1)
  - Morbid thoughts [None]

NARRATIVE: CASE EVENT DATE: 20191210
